FAERS Safety Report 7407057-4 (Version None)
Quarter: 2011Q2

REPORT INFORMATION
  Report Type: 
  Country: None (occurrence: None)
  Receive Date: 20110411
  Receipt Date: 20110405
  Transmission Date: 20111010
  Serious: Yes (Hospitalization)
  Sender: FDA-Public Use
  Company Number: GB-GILEAD-E2B_00001103

PATIENT
  Age: 53 Year
  Sex: Male

DRUGS (6)
  1. NEVIRAPINE [Suspect]
     Indication: HIV INFECTION
     Dates: start: 19970101, end: 20050101
  2. DIDANOSINE [Suspect]
     Indication: HIV INFECTION
     Dates: start: 19970101, end: 20050101
  3. TRUVADA [Suspect]
     Indication: HIV INFECTION
     Dates: start: 20090101
  4. ZIDOVUDINE [Suspect]
     Indication: HIV INFECTION
     Dates: start: 19970101, end: 20050101
  5. LAMIVUDINE [Suspect]
     Indication: HIV INFECTION
     Dates: start: 20050101, end: 20090101
  6. VIREAD [Suspect]
     Indication: HIV INFECTION
     Dates: start: 20050101, end: 20090101

REACTIONS (3)
  - OESOPHAGEAL VARICES HAEMORRHAGE [None]
  - HAEMATEMESIS [None]
  - NODULAR REGENERATIVE HYPERPLASIA [None]
